FAERS Safety Report 7945623-8 (Version None)
Quarter: 2011Q4

REPORT INFORMATION
  Report Type: 
  Country: None (occurrence: None)
  Receive Date: 20111129
  Receipt Date: 20111118
  Transmission Date: 20120403
  Serious: Yes (Hospitalization)
  Sender: FDA-Public Use
  Company Number: US-JNJFOC-20111004317

PATIENT
  Sex: Male
  Weight: 48.8 kg

DRUGS (2)
  1. INFLIXIMAB, RECOMBINANT [Suspect]
     Indication: INFLAMMATORY BOWEL DISEASE
     Route: 042
  2. CERTOLIZUMAB PEGOL [Concomitant]
     Dates: start: 20110420

REACTIONS (1)
  - VIRAL INFECTION [None]
